FAERS Safety Report 9094923 (Version 1)
Quarter: 2013Q1

REPORT INFORMATION
  Report Type: Spontaneous
  Country: US (occurrence: None)
  Receive Date: 20130214
  Receipt Date: 20130214
  Transmission Date: 20140127
  Serious: Yes (Life-Threatening, Hospitalization)
  Sender: FDA-Public Use
  Company Number: None

PATIENT
  Age: 57 Year
  Sex: Female
  Weight: 76.2 kg

DRUGS (1)
  1. LISINOPRIL 40MG MERCK [Suspect]
     Dates: start: 20120609, end: 20121010

REACTIONS (3)
  - Angioedema [None]
  - Lip swelling [None]
  - Tracheal stenosis [None]
